FAERS Safety Report 19502910 (Version 1)
Quarter: 2021Q3

REPORT INFORMATION
  Report Type: Spontaneous
  Country: US (occurrence: US)
  Receive Date: 20210707
  Receipt Date: 20210707
  Transmission Date: 20211014
  Serious: Yes (Other)
  Sender: FDA-Public Use
  Company Number: US-PURDUE-USA-2021-0272779

PATIENT
  Sex: Male

DRUGS (2)
  1. COLACE [Suspect]
     Active Substance: DOCUSATE SODIUM
     Indication: HAEMORRHOIDAL HAEMORRHAGE
     Dosage: 1 CAPSL, AM
     Route: 048
  2. COLACE [Suspect]
     Active Substance: DOCUSATE SODIUM
     Dosage: 1 CAPSL, PM
     Route: 048

REACTIONS (2)
  - Intestinal haemorrhage [Unknown]
  - Faeces discoloured [Unknown]
